FAERS Safety Report 21119742 (Version 1)
Quarter: 2022Q3

REPORT INFORMATION
  Report Type: Spontaneous
  Country: US (occurrence: None)
  Receive Date: 20220721
  Receipt Date: 20220721
  Transmission Date: 20221027
  Serious: Yes (Hospitalization)
  Sender: FDA-Public Use
  Company Number: None

PATIENT
  Age: 28 Year
  Sex: Female
  Weight: 75.15 kg

DRUGS (4)
  1. MAGNESIUM CITRATE [Suspect]
     Active Substance: MAGNESIUM CITRATE
     Indication: Constipation
     Dates: start: 20220330, end: 20220331
  2. VITAMIN B12 [Concomitant]
     Active Substance: CYANOCOBALAMIN
  3. one a day vitamin [Concomitant]
  4. vitamin D [Concomitant]

REACTIONS (5)
  - Nausea [None]
  - Vomiting [None]
  - Abdominal pain upper [None]
  - Laryngitis [None]
  - Tonsillitis [None]

NARRATIVE: CASE EVENT DATE: 20220405
